FAERS Safety Report 4964236-3 (Version None)
Quarter: 2006Q1

REPORT INFORMATION
  Report Type: 
  Country: None (occurrence: None)
  Receive Date: 20060331
  Receipt Date: 20060317
  Transmission Date: 20060701
  Serious: Yes (Other)
  Sender: FDA-Public Use
  Company Number: US200603004911

PATIENT
  Age: 20 Year
  Sex: Female
  Weight: 59 kg

DRUGS (2)
  1. STRATTERA [Suspect]
     Indication: DEPRESSION
     Dosage: SEE IMAGE
     Dates: end: 20060314
  2. STRATTERA [Suspect]
     Indication: DEPRESSION
     Dosage: SEE IMAGE
     Dates: start: 20060201

REACTIONS (15)
  - ARTHRALGIA [None]
  - CHROMATURIA [None]
  - DYSURIA [None]
  - HEPATITIS [None]
  - HEPATOMEGALY [None]
  - NAUSEA [None]
  - ORAL CANDIDIASIS [None]
  - POLLAKIURIA [None]
  - PROTEIN URINE ABSENT [None]
  - PYREXIA [None]
  - RASH MACULAR [None]
  - RED BLOOD CELLS URINE POSITIVE [None]
  - URINE KETONE BODY PRESENT [None]
  - VOMITING [None]
  - WHITE BLOOD CELLS URINE POSITIVE [None]
